FAERS Safety Report 7901126-8 (Version None)
Quarter: 2011Q4

REPORT INFORMATION
  Report Type: 
  Country: None (occurrence: None)
  Receive Date: 20111108
  Receipt Date: 20111024
  Transmission Date: 20120403
  Serious: Yes (Other)
  Sender: FDA-Public Use
  Company Number: US-ENDO PHARMACEUTICALS INC.-OPER20110279

PATIENT
  Sex: Female

DRUGS (3)
  1. EFFEXOR XR [Concomitant]
     Indication: ANXIETY
     Dosage: UNK
     Route: 048
  2. ATIVAN [Concomitant]
     Indication: INSOMNIA
     Dosage: UNK
     Route: 048
  3. OPANA ER [Suspect]
     Indication: PAIN
     Route: 048

REACTIONS (3)
  - THERAPEUTIC RESPONSE UNEXPECTED [None]
  - DRUG ABUSE [None]
  - DRUG DIVERSION [None]
